FAERS Safety Report 9078833 (Version 1)
Quarter: 2013Q1

REPORT INFORMATION
  Report Type: Spontaneous
  Country: CA (occurrence: CA)
  Receive Date: 20130215
  Receipt Date: 20130215
  Transmission Date: 20140127
  Serious: Yes (Life-Threatening)
  Sender: FDA-Public Use
  Company Number: CA-ELI_LILLY_AND_COMPANY-CA201302004139

PATIENT
  Age: 60 Year
  Sex: Male

DRUGS (2)
  1. EFFIENT [Suspect]
     Indication: PERCUTANEOUS CORONARY INTERVENTION
     Dosage: 60 MG, SINGLE
     Dates: start: 20130208
  2. INTEGRILIN [Concomitant]

REACTIONS (2)
  - Intestinal perforation [Unknown]
  - Papillary muscle rupture [Unknown]
